FAERS Safety Report 25089620 (Version 1)
Quarter: 2025Q1

REPORT INFORMATION
  Report Type: Report from Study
  Country: CA (occurrence: CA)
  Receive Date: 20250318
  Receipt Date: 20250318
  Transmission Date: 20250409
  Serious: Yes (Other)
  Sender: PUMA
  Company Number: CA-PUMA BIOTECHNOLOGY, LTD.-2024-PUM-CA001145

PATIENT

DRUGS (5)
  1. NERLYNX [Suspect]
     Active Substance: NERATINIB
     Indication: HER2 positive breast cancer
     Dosage: 120 MILLIGRAM, QD
     Route: 048
     Dates: start: 20240730, end: 20240805
  2. NERLYNX [Suspect]
     Active Substance: NERATINIB
     Dosage: 160 MILLIGRAM, QD
     Route: 048
     Dates: start: 20240806, end: 20240812
  3. NERLYNX [Suspect]
     Active Substance: NERATINIB
     Dosage: 120 MILLIGRAM, QD
     Route: 048
     Dates: start: 20240902
  4. NERLYNX [Suspect]
     Active Substance: NERATINIB
     Dosage: 80 MILLIGRAM, QD
     Route: 048
     Dates: end: 20250216
  5. LOPERAMIDE [Concomitant]
     Active Substance: LOPERAMIDE
     Indication: Prophylaxis against diarrhoea

REACTIONS (5)
  - Cardiac failure [Unknown]
  - Chest pain [Unknown]
  - Liver function test increased [Not Recovered/Not Resolved]
  - Hepatic enzyme increased [Unknown]
  - Product prescribing error [Unknown]

NARRATIVE: CASE EVENT DATE: 20240801
